FAERS Safety Report 5361082-6 (Version None)
Quarter: 2007Q2

REPORT INFORMATION
  Report Type: 
  Country: None (occurrence: None)
  Receive Date: 20070618
  Receipt Date: 20070606
  Transmission Date: 20071010
  Serious: Yes (Other)
  Sender: FDA-Public Use
  Company Number: CH-PFIZER INC-2007048640

PATIENT
  Sex: Male

DRUGS (1)
  1. ATORVASTATIN CALCIUM [Suspect]
     Indication: HYPERCHOLESTEROLAEMIA
     Route: 048
     Dates: start: 20050101, end: 20070224

REACTIONS (5)
  - BRONCHIAL OBSTRUCTION [None]
  - COUGH [None]
  - DYSPNOEA [None]
  - MYALGIA [None]
  - RESPIRATORY DISTRESS [None]
